FAERS Safety Report 8345115-0 (Version None)
Quarter: 2012Q2

REPORT INFORMATION
  Report Type: 
  Country: None (occurrence: None)
  Receive Date: 20120508
  Receipt Date: 20120503
  Transmission Date: 20120825
  Serious: Yes (Hospitalization, Other)
  Sender: FDA-Public Use
  Company Number: FR-PFIZER INC-2012108333

PATIENT
  Age: 82 Year
  Sex: Male

DRUGS (6)
  1. CORDARONE [Suspect]
     Dosage: UNK
     Route: 048
     Dates: end: 20120315
  2. CANDESARTAN CILEXETIL [Concomitant]
     Dosage: 16 MG, 1X/DAY
     Route: 048
     Dates: end: 20120315
  3. PREVISCAN [Suspect]
     Dosage: 20 MG, UNK
     Route: 048
     Dates: end: 20120315
  4. LASIX [Concomitant]
     Dosage: 40 MG, 2X/DAY
     Route: 048
  5. ATORVASTATIN [Suspect]
     Dosage: UNK
     Route: 048
     Dates: end: 20120315
  6. ZOLPIDEM TARTRATE [Concomitant]

REACTIONS (5)
  - INTERSTITIAL LUNG DISEASE [None]
  - CARDIAC FAILURE [None]
  - PNEUMONIA [None]
  - PLEURAL EFFUSION [None]
  - RESPIRATORY DISTRESS [None]
